FAERS Safety Report 7108116-6 (Version None)
Quarter: 2010Q4

REPORT INFORMATION
  Report Type: 
  Country: None (occurrence: None)
  Receive Date: 20101117
  Receipt Date: 20101109
  Transmission Date: 20110411
  Serious: Yes (Other)
  Sender: FDA-Public Use
  Company Number: US-ELI_LILLY_AND_COMPANY-US201011002743

PATIENT
  Sex: Male

DRUGS (2)
  1. EFFIENT [Suspect]
     Indication: STENT PLACEMENT
     Dates: start: 20100820
  2. ASPIRIN [Concomitant]

REACTIONS (3)
  - HAEMOPTYSIS [None]
  - PANCREATIC CARCINOMA [None]
  - POLYURIA [None]
